FAERS Safety Report 23746995 (Version 1)
Quarter: 2024Q2

REPORT INFORMATION
  Report Type: Spontaneous
  Country: ES (occurrence: ES)
  Receive Date: 20240416
  Receipt Date: 20240416
  Transmission Date: 20240716
  Serious: Yes (Other)
  Sender: FDA-Public Use
  Company Number: ES-STRIDES ARCOLAB LIMITED-2024SP004286

PATIENT

DRUGS (9)
  1. AMPICILLIN [Suspect]
     Active Substance: AMPICILLIN
     Indication: Product used for unknown indication
     Dosage: UNK (THE PATIENT^S MOTHER RECEIVED AMPICILLIN 1?G/6H FOR 7?DAYS FOR PROPHYLACTIC ANTIBIOTIC THERAPY
     Route: 064
  2. AMPICILLIN [Suspect]
     Active Substance: AMPICILLIN
     Dosage: UNK (THE PATIENT^S MOTHER RECEIVED AMPICILLIN 1?G/6H FOR PROPHYLACTIC ANTIBIOTIC THERAPY DURING PREG
     Route: 064
  3. ATOSIBAN [Suspect]
     Active Substance: ATOSIBAN
     Indication: Product used for unknown indication
     Dosage: UNK (THE PATIENT^S MOTHER RECEIVED ATOSIBAN FOR THREATENED PRETERM LABOUR DURING PREGNANCY)
     Route: 064
  4. MAGNESIUM SULFATE [Suspect]
     Active Substance: MAGNESIUM SULFATE\MAGNESIUM SULFATE HEPTAHYDRATE
     Indication: Product used for unknown indication
     Dosage: UNK (THE PATIENT^S MOTHER RECEIVED MAGNESIUM SULFATE FOR THREATENED PRETERM LABOUR DURING PREGNANCY)
     Route: 064
  5. BETAMETHASONE [Suspect]
     Active Substance: BETAMETHASONE\BETAMETHASONE DIPROPIONATE
     Indication: Maternal therapy to enhance foetal lung maturity
     Dosage: UNK (THE PATIENT^S MOTHER RECEIVED BETAMETHASONE FOR FETAL LUNG MATURATION DURING PREGNANCY)
     Route: 064
  6. GENTAMICIN [Suspect]
     Active Substance: GENTAMICIN
     Indication: Product used for unknown indication
     Dosage: UNK (THE PATIENT^S MOTHER RECEIVED GENTAMICIN 240?MG/24H FOR 6?DAYS FOR PROPHYLACTIC ANTIBIOTIC THER
     Route: 064
  7. GENTAMICIN [Suspect]
     Active Substance: GENTAMICIN
     Dosage: UNK (THE PATIENT^S MOTHER RECEIVED GENTAMICIN 240?MG/24H FOR PROPHYLACTIC ANTIBIOTIC THERAPY DURING
     Route: 064
  8. AZITHROMYCIN [Suspect]
     Active Substance: AZITHROMYCIN
     Indication: Product used for unknown indication
     Dosage: UNK (THE PATIENT^S MOTHER RECEIVED AZITHROMYCIN 500?MG/12H FOR 6?DAYS FOR PROPHYLACTIC ANTIBIOTIC TH
     Route: 064
  9. AZITHROMYCIN [Suspect]
     Active Substance: AZITHROMYCIN
     Dosage: UNK (THE PATIENT^S MOTHER RECEIVED AZITHROMYCIN 500?MG/12H FOR PROPHYLACTIC ANTIBIOTIC THERAPY DURIN
     Route: 064

REACTIONS (2)
  - Premature baby [Unknown]
  - Foetal exposure during pregnancy [Unknown]
